FAERS Safety Report 5875502-1 (Version None)
Quarter: 2008Q3

REPORT INFORMATION
  Report Type: 
  Country: None (occurrence: None)
  Receive Date: 20080905
  Receipt Date: 20080829
  Transmission Date: 20090109
  Serious: Yes (Other)
  Sender: FDA-Public Use
  Company Number: CHPA2008US14516

PATIENT
  Age: 64 Year
  Sex: Female

DRUGS (1)
  1. MAALOX ANTACID/ANTIGAS MAX LIQ (NCH) (MAGNESIUM HYDROXIDE, ALUMINIUM H [Suspect]
     Indication: ANTACID THERAPY
     Dosage: 6 TSP, 3 TO 4 TIMES DAILY

REACTIONS (2)
  - INTENTIONAL DRUG MISUSE [None]
  - SPLEEN DISORDER [None]
